FAERS Safety Report 7228041-X (Version None)
Quarter: 2011Q1

REPORT INFORMATION
  Report Type: 
  Country: None (occurrence: None)
  Receive Date: 20110114
  Receipt Date: 20110112
  Transmission Date: 20110831
  Serious: Yes (Other)
  Sender: FDA-Public Use
  Company Number: US-ABBOTT-10P-163-0689512-00

PATIENT
  Sex: Male
  Weight: 108.96 kg

DRUGS (6)
  1. METOPROLOL [Concomitant]
     Indication: HYPERTENSION
  2. VITAMIN TAB [Concomitant]
     Indication: VITAMIN SUPPLEMENTATION
  3. LUPRON DEPOT [Suspect]
     Indication: PROSTATE CANCER
     Dates: start: 20030101
  4. MEGESTROL ACETATE [Concomitant]
     Indication: HOT FLUSH
  5. SIMVASTATIN [Concomitant]
     Indication: BLOOD CHOLESTEROL INCREASED
  6. CLONAZEPAM [Concomitant]
     Indication: ANXIETY

REACTIONS (15)
  - PAIN IN EXTREMITY [None]
  - DYSPNOEA [None]
  - DRUG DISPENSING ERROR [None]
  - PAIN IN JAW [None]
  - DIZZINESS [None]
  - PROSTATIC SPECIFIC ANTIGEN INCREASED [None]
  - HOT FLUSH [None]
  - CHEST PAIN [None]
  - CORONARY ARTERY OCCLUSION [None]
  - FATIGUE [None]
  - PRODUCT CONTAINER ISSUE [None]
  - SOMNOLENCE [None]
  - BREAST MASS [None]
  - BREAST ENLARGEMENT [None]
  - WEIGHT INCREASED [None]
